FAERS Safety Report 21516931 (Version 2)
Quarter: 2022Q4

REPORT INFORMATION
  Report Type: Spontaneous
  Country: JP (occurrence: JP)
  Receive Date: 20221028
  Receipt Date: 20221110
  Transmission Date: 20230113
  Serious: Yes (Hospitalization, Other)
  Sender: FDA-Public Use
  Company Number: JP-TAKEDA-2022TJP076088

PATIENT
  Age: 88 Year
  Sex: Male

DRUGS (2)
  1. ROZEREM [Suspect]
     Active Substance: RAMELTEON
     Indication: Insomnia
     Dosage: 8 MILLIGRAM, QD
     Route: 048
     Dates: start: 20221025, end: 20221025
  2. CLOPIDOGREL BISULFATE [Suspect]
     Active Substance: CLOPIDOGREL BISULFATE
     Indication: Product used for unknown indication
     Dosage: UNK
     Route: 048
     Dates: start: 20221025, end: 20221025

REACTIONS (2)
  - Hospitalisation [Unknown]
  - Discoloured vomit [Not Recovered/Not Resolved]

NARRATIVE: CASE EVENT DATE: 20221025
